FAERS Safety Report 5287191-8 (Version None)
Quarter: 2007Q1

REPORT INFORMATION
  Report Type: 
  Country: None (occurrence: None)
  Receive Date: 20070330
  Receipt Date: 20070306
  Transmission Date: 20070707
  Serious: Yes (Other)
  Sender: FDA-Public Use
  Company Number: 1022556-2007-00067

PATIENT
  Sex: Female

DRUGS (1)
  1. UNISOM [Suspect]
     Indication: SLEEP DISORDER
     Dosage: 1 TAB ORAL
     Route: 048
     Dates: start: 20070306

REACTIONS (3)
  - FATIGUE [None]
  - HEART RATE DECREASED [None]
  - HYPOTENSION [None]
